FAERS Safety Report 24774538 (Version 2)
Quarter: 2025Q3

REPORT INFORMATION
  Report Type: Spontaneous
  Country: CA (occurrence: CA)
  Receive Date: 20241225
  Receipt Date: 20250704
  Transmission Date: 20251021
  Serious: Yes (Hospitalization, Disabling, Other)
  Sender: SANOFI AVENTIS
  Company Number: CA-SA-2024SA377131

PATIENT
  Age: 60 Year
  Sex: Female
  Weight: 97 kg

DRUGS (122)
  1. ARAVA [Suspect]
     Active Substance: LEFLUNOMIDE
     Indication: Rheumatoid arthritis
     Route: 048
  2. ARAVA [Suspect]
     Active Substance: LEFLUNOMIDE
     Route: 048
  3. ARAVA [Suspect]
     Active Substance: LEFLUNOMIDE
  4. ARAVA [Suspect]
     Active Substance: LEFLUNOMIDE
  5. ARAVA [Suspect]
     Active Substance: LEFLUNOMIDE
  6. HYDROXYCHLOROQUINE SULFATE [Suspect]
     Active Substance: HYDROXYCHLOROQUINE SULFATE
     Indication: Rheumatoid arthritis
     Route: 048
  7. HYDROXYCHLOROQUINE SULFATE [Suspect]
     Active Substance: HYDROXYCHLOROQUINE SULFATE
     Route: 048
  8. HYDROXYCHLOROQUINE SULFATE [Suspect]
     Active Substance: HYDROXYCHLOROQUINE SULFATE
     Route: 048
  9. HYDROXYCHLOROQUINE SULFATE [Suspect]
     Active Substance: HYDROXYCHLOROQUINE SULFATE
     Dosage: 400 MG, QD
     Route: 048
  10. HYDROXYCHLOROQUINE SULFATE [Suspect]
     Active Substance: HYDROXYCHLOROQUINE SULFATE
  11. HYDROXYCHLOROQUINE SULFATE [Suspect]
     Active Substance: HYDROXYCHLOROQUINE SULFATE
  12. HYDROXYCHLOROQUINE SULFATE [Suspect]
     Active Substance: HYDROXYCHLOROQUINE SULFATE
     Route: 048
  13. HYDROXYCHLOROQUINE SULFATE [Suspect]
     Active Substance: HYDROXYCHLOROQUINE SULFATE
     Dosage: 400 MG, QD
     Route: 048
  14. LEVOFLOXACIN [Suspect]
     Active Substance: LEVOFLOXACIN
     Indication: Product used for unknown indication
  15. LEVOFLOXACIN [Suspect]
     Active Substance: LEVOFLOXACIN
  16. LEVOFLOXACIN [Suspect]
     Active Substance: LEVOFLOXACIN
  17. LEVOFLOXACIN [Suspect]
     Active Substance: LEVOFLOXACIN
  18. LEVOFLOXACIN [Suspect]
     Active Substance: LEVOFLOXACIN
  19. LEVOFLOXACIN [Suspect]
     Active Substance: LEVOFLOXACIN
  20. PLAQUENIL [Suspect]
     Active Substance: HYDROXYCHLOROQUINE SULFATE
     Route: 048
  21. METRONIDAZOLE [Suspect]
     Active Substance: METRONIDAZOLE
     Indication: Rheumatoid arthritis
     Route: 042
  22. METRONIDAZOLE [Suspect]
     Active Substance: METRONIDAZOLE
     Route: 065
  23. METRONIDAZOLE [Suspect]
     Active Substance: METRONIDAZOLE
     Route: 065
  24. METRONIDAZOLE [Suspect]
     Active Substance: METRONIDAZOLE
     Route: 065
  25. FLAGYL [Suspect]
     Active Substance: METRONIDAZOLE\METRONIDAZOLE HYDROCHLORIDE
  26. PREDNISONE [Suspect]
     Active Substance: PREDNISONE
     Indication: Rheumatoid arthritis
     Route: 048
  27. PREDNISONE [Suspect]
     Active Substance: PREDNISONE
     Indication: Product used for unknown indication
  28. PREDNISONE [Suspect]
     Active Substance: PREDNISONE
  29. DICLOFENAC POTASSIUM [Suspect]
     Active Substance: DICLOFENAC POTASSIUM
     Indication: Product used for unknown indication
  30. DICLOFENAC SODIUM\MISOPROSTOL [Suspect]
     Active Substance: DICLOFENAC SODIUM\MISOPROSTOL
     Indication: Rheumatoid arthritis
  31. ADALIMUMAB [Suspect]
     Active Substance: ADALIMUMAB
     Indication: Rheumatoid arthritis
     Route: 058
  32. ADALIMUMAB [Suspect]
     Active Substance: ADALIMUMAB
     Route: 058
  33. ADALIMUMAB [Suspect]
     Active Substance: ADALIMUMAB
     Route: 058
  34. LEFLUNOMIDE [Suspect]
     Active Substance: LEFLUNOMIDE
  35. LEFLUNOMIDE [Suspect]
     Active Substance: LEFLUNOMIDE
     Route: 048
  36. LEFLUNOMIDE [Suspect]
     Active Substance: LEFLUNOMIDE
     Route: 048
  37. PREDNISONE [Suspect]
     Active Substance: PREDNISONE
     Indication: Rheumatoid arthritis
     Route: 048
  38. ARTHROTEC [Suspect]
     Active Substance: DICLOFENAC SODIUM\MISOPROSTOL
     Indication: Rheumatoid arthritis
     Dosage: 400 MG, QD
     Route: 048
  39. ARTHROTEC [Suspect]
     Active Substance: DICLOFENAC SODIUM\MISOPROSTOL
     Dosage: 400 MG, QD
     Route: 048
  40. ARTHROTEC [Suspect]
     Active Substance: DICLOFENAC SODIUM\MISOPROSTOL
  41. ARTHROTEC [Suspect]
     Active Substance: DICLOFENAC SODIUM\MISOPROSTOL
  42. ARTHROTEC [Suspect]
     Active Substance: DICLOFENAC SODIUM\MISOPROSTOL
     Route: 048
  43. ARTHROTEC [Suspect]
     Active Substance: DICLOFENAC SODIUM\MISOPROSTOL
  44. BISOPROLOL [Suspect]
     Active Substance: BISOPROLOL
     Indication: Product used for unknown indication
  45. BISOPROLOL [Suspect]
     Active Substance: BISOPROLOL
  46. BISOPROLOL [Suspect]
     Active Substance: BISOPROLOL
  47. BISOPROLOL [Suspect]
     Active Substance: BISOPROLOL
  48. CECLOR [Suspect]
     Active Substance: CEFACLOR
     Indication: Product used for unknown indication
  49. CEFACLOR [Suspect]
     Active Substance: CEFACLOR
     Indication: Rheumatoid arthritis
  50. CEFACLOR [Suspect]
     Active Substance: CEFACLOR
     Indication: Product used for unknown indication
  51. CEFACLOR [Suspect]
     Active Substance: CEFACLOR
     Route: 048
  52. CEFACLOR [Suspect]
     Active Substance: CEFACLOR
     Dosage: 200 MG, QD
     Route: 048
  53. CEFACLOR [Suspect]
     Active Substance: CEFACLOR
     Dosage: 200 MG, QD
  54. CEFACLOR [Suspect]
     Active Substance: CEFACLOR
     Dosage: 200 MG, QD
  55. CEFACLOR [Suspect]
     Active Substance: CEFACLOR
     Dosage: 200 MG, QD
     Route: 048
  56. MISOPROSTOL [Suspect]
     Active Substance: MISOPROSTOL
     Indication: Rheumatoid arthritis
  57. MISOPROSTOL [Suspect]
     Active Substance: MISOPROSTOL
  58. CELEBREX [Suspect]
     Active Substance: CELECOXIB
     Dosage: 200 MG, QD
     Route: 048
  59. CELEBREX [Suspect]
     Active Substance: CELECOXIB
  60. DEMEROL [Suspect]
     Active Substance: MEPERIDINE HYDROCHLORIDE
     Indication: Rheumatoid arthritis
  61. DEMEROL [Suspect]
     Active Substance: MEPERIDINE HYDROCHLORIDE
  62. DEMEROL [Suspect]
     Active Substance: MEPERIDINE HYDROCHLORIDE
  63. DICLOFENAC SODIUM\MISOPROSTOL [Suspect]
     Active Substance: DICLOFENAC SODIUM\MISOPROSTOL
     Indication: Rheumatoid arthritis
     Route: 048
  64. DICLOFENAC SODIUM\MISOPROSTOL [Suspect]
     Active Substance: DICLOFENAC SODIUM\MISOPROSTOL
  65. DICLOFENAC SODIUM\MISOPROSTOL [Suspect]
     Active Substance: DICLOFENAC SODIUM\MISOPROSTOL
  66. ERYTHROMYCIN [Suspect]
     Active Substance: ERYTHROMYCIN
  67. ERYTHROMYCIN [Suspect]
     Active Substance: ERYTHROMYCIN
     Indication: Product used for unknown indication
  68. LEFLUNOMIDE [Suspect]
     Active Substance: LEFLUNOMIDE
     Indication: Rheumatoid arthritis
  69. LEVOFLOXACIN [Suspect]
     Active Substance: LEVOFLOXACIN
     Indication: Product used for unknown indication
  70. LEVOFLOXACIN [Suspect]
     Active Substance: LEVOFLOXACIN
  71. PREGABALIN [Suspect]
     Active Substance: PREGABALIN
  72. SULFASALAZINE [Suspect]
     Active Substance: SULFASALAZINE
     Indication: Rheumatoid arthritis
  73. SULFASALAZINE [Suspect]
     Active Substance: SULFASALAZINE
  74. SULFASALAZINE [Suspect]
     Active Substance: SULFASALAZINE
  75. DICLOFENAC SODIUM [Suspect]
     Active Substance: DICLOFENAC SODIUM
     Indication: Rheumatoid arthritis
     Route: 048
  76. CELECOXIB [Suspect]
     Active Substance: CELECOXIB
     Indication: Product used for unknown indication
     Dosage: 200 MG, QD
  77. CELECOXIB [Suspect]
     Active Substance: CELECOXIB
  78. CELECOXIB [Suspect]
     Active Substance: CELECOXIB
     Route: 048
  79. CELECOXIB [Suspect]
     Active Substance: CELECOXIB
     Dosage: 200 MG, QD
     Route: 048
  80. CELECOXIB [Suspect]
     Active Substance: CELECOXIB
     Dosage: 200 MG, QD
  81. CELECOXIB [Suspect]
     Active Substance: CELECOXIB
     Dosage: 200 MG, QD
  82. CELECOXIB [Suspect]
     Active Substance: CELECOXIB
     Dosage: 200 MG, QD
     Route: 048
  83. BISOPROLOL FUMARATE [Suspect]
     Active Substance: BISOPROLOL FUMARATE
  84. PREGABALIN [Suspect]
     Active Substance: PREGABALIN
     Indication: Product used for unknown indication
  85. PREGABALIN [Suspect]
     Active Substance: PREGABALIN
  86. PREGABALIN [Suspect]
     Active Substance: PREGABALIN
  87. NORFLOXACIN [Suspect]
     Active Substance: NORFLOXACIN
     Indication: Product used for unknown indication
     Route: 048
  88. NORFLOXACIN [Suspect]
     Active Substance: NORFLOXACIN
  89. NORFLOXACIN [Suspect]
     Active Substance: NORFLOXACIN
     Route: 048
  90. NORFLOXACIN [Suspect]
     Active Substance: NORFLOXACIN
     Route: 048
  91. NORFLOXACIN [Suspect]
     Active Substance: NORFLOXACIN
     Route: 048
  92. NORFLOXACIN [Suspect]
     Active Substance: NORFLOXACIN
  93. NORFLOXACIN [Suspect]
     Active Substance: NORFLOXACIN
  94. ERYTHROMYCIN ESTOLATE [Suspect]
     Active Substance: ERYTHROMYCIN ESTOLATE
     Indication: Product used for unknown indication
  95. ERYTHROMYCIN ESTOLATE [Suspect]
     Active Substance: ERYTHROMYCIN ESTOLATE
  96. ERYTHROMYCIN STEARATE [Suspect]
     Active Substance: ERYTHROMYCIN STEARATE
  97. HUMIRA [Suspect]
     Active Substance: ADALIMUMAB
     Indication: Rheumatoid arthritis
     Route: 058
  98. HUMIRA [Suspect]
     Active Substance: ADALIMUMAB
     Route: 058
  99. HUMIRA [Suspect]
     Active Substance: ADALIMUMAB
     Route: 058
  100. HUMIRA [Suspect]
     Active Substance: ADALIMUMAB
     Route: 058
  101. HUMIRA [Suspect]
     Active Substance: ADALIMUMAB
     Route: 058
  102. HUMIRA [Suspect]
     Active Substance: ADALIMUMAB
     Route: 058
  103. HYRIMOZ [Suspect]
     Active Substance: ADALIMUMAB-ADAZ
     Indication: Rheumatoid arthritis
     Route: 058
  104. LYRICA [Suspect]
     Active Substance: PREGABALIN
  105. MEPERIDINE [Suspect]
     Active Substance: MEPERIDINE
  106. MEPERIDINE HYDROCHLORIDE [Suspect]
     Active Substance: MEPERIDINE HYDROCHLORIDE
     Indication: Rheumatoid arthritis
  107. MEPERIDINE HYDROCHLORIDE [Suspect]
     Active Substance: MEPERIDINE HYDROCHLORIDE
  108. MEPERIDINE HYDROCHLORIDE [Suspect]
     Active Substance: MEPERIDINE HYDROCHLORIDE
  109. MEPERIDINE HYDROCHLORIDE [Suspect]
     Active Substance: MEPERIDINE HYDROCHLORIDE
  110. METHOTREXATE [Suspect]
     Active Substance: METHOTREXATE
     Indication: Rheumatoid arthritis
     Dosage: 20 MG, QW
     Route: 048
  111. METHOTREXATE [Suspect]
     Active Substance: METHOTREXATE
     Dosage: 1 MG, QW
     Route: 048
  112. METHOTREXATE [Suspect]
     Active Substance: METHOTREXATE
     Dosage: 1 DF, QW
     Route: 048
  113. METHOTREXATE [Suspect]
     Active Substance: METHOTREXATE
     Route: 013
  114. METHOTREXATE [Suspect]
     Active Substance: METHOTREXATE
  115. METHOTREXATE [Suspect]
     Active Substance: METHOTREXATE
  116. METHOTREXATE [Suspect]
     Active Substance: METHOTREXATE
  117. METHOTREXATE [Suspect]
     Active Substance: METHOTREXATE
  118. METHOTREXATE [Suspect]
     Active Substance: METHOTREXATE
  119. METHOTREXATE [Suspect]
     Active Substance: METHOTREXATE
  120. METHOTREXATE [Suspect]
     Active Substance: METHOTREXATE
  121. METHOTREXATE [Suspect]
     Active Substance: METHOTREXATE
  122. METRONIDAZOLE BENZOATE [Suspect]
     Active Substance: METRONIDAZOLE BENZOATE
     Indication: Rheumatoid arthritis

REACTIONS (19)
  - Infection [Not Recovered/Not Resolved]
  - Bloody discharge [Not Recovered/Not Resolved]
  - Dizziness [Not Recovered/Not Resolved]
  - Fatigue [Not Recovered/Not Resolved]
  - Vomiting [Not Recovered/Not Resolved]
  - Hypoaesthesia [Not Recovered/Not Resolved]
  - International normalised ratio fluctuation [Not Recovered/Not Resolved]
  - Iron deficiency [Not Recovered/Not Resolved]
  - Lyme disease [Not Recovered/Not Resolved]
  - Malaise [Not Recovered/Not Resolved]
  - Nausea [Not Recovered/Not Resolved]
  - Pain in extremity [Not Recovered/Not Resolved]
  - Platelet count increased [Not Recovered/Not Resolved]
  - Red blood cell sedimentation rate increased [Not Recovered/Not Resolved]
  - Drug hypersensitivity [Not Recovered/Not Resolved]
  - Staphylococcal infection [Not Recovered/Not Resolved]
  - Drug intolerance [Not Recovered/Not Resolved]
  - Drug ineffective [Not Recovered/Not Resolved]
  - Therapeutic product effect incomplete [Not Recovered/Not Resolved]
